FAERS Safety Report 12964001 (Version 1)
Quarter: 2016Q4

REPORT INFORMATION
  Report Type: Spontaneous
  Country: IN (occurrence: IN)
  Receive Date: 20161122
  Receipt Date: 20161122
  Transmission Date: 20170207
  Serious: Yes (Other)
  Sender: FDA-Public Use
  Company Number: IN-FRESENIUS KABI-FK201609044

PATIENT
  Age: 28 Year
  Sex: Female

DRUGS (1)
  1. DOXYCYCLINE FOR INJECTION (MANUFACTURER UNKNOWN) [Suspect]
     Active Substance: DOXYCYCLINE
     Indication: PRODUCT USED FOR UNKNOWN INDICATION
     Route: 065

REACTIONS (1)
  - Pseudoporphyria [Recovering/Resolving]
